FAERS Safety Report 21734517 (Version 3)
Quarter: 2023Q1

REPORT INFORMATION
  Report Type: Spontaneous
  Country: US (occurrence: US)
  Receive Date: 20221215
  Receipt Date: 20230303
  Transmission Date: 20230418
  Serious: No
  Sender: FDA-Public Use
  Company Number: US-PFIZER INC-PV202200123412

PATIENT
  Age: 62 Year
  Sex: Male

DRUGS (1)
  1. IBRANCE [Suspect]
     Active Substance: PALBOCICLIB
     Indication: Breast cancer metastatic
     Dosage: 125 MG, CYCLIC (1 TABLET DAILY ON DAYS 1-21 OF A 28 DAY CYCLE WITH OR WITHOUT FOOD)
     Route: 048
     Dates: start: 20221122

REACTIONS (1)
  - Diarrhoea [Not Recovered/Not Resolved]
